FAERS Safety Report 6890363-X (Version None)
Quarter: 2010Q3

REPORT INFORMATION
  Report Type: 
  Country: None (occurrence: None)
  Receive Date: 20100730
  Receipt Date: 20081003
  Transmission Date: 20110219
  Serious: No
  Sender: FDA-Public Use
  Company Number: US-PFIZER INC-2008083886

PATIENT
  Sex: Female
  Weight: 70.31 kg

DRUGS (3)
  1. LIPITOR [Suspect]
     Indication: BLOOD CHOLESTEROL INCREASED
  2. ATENOLOL [Concomitant]
  3. DYAZIDE [Concomitant]

REACTIONS (2)
  - AUTOIMMUNE THYROIDITIS [None]
  - WRONG TECHNIQUE IN DRUG USAGE PROCESS [None]
